FAERS Safety Report 10585010 (Version 2)
Quarter: 2015Q2

REPORT INFORMATION
  Report Type: Spontaneous
  Country: US (occurrence: None)
  Receive Date: 20141113
  Receipt Date: 20150506
  Transmission Date: 20150821
  Serious: Yes (Other)
  Sender: FDA-Public Use
  Company Number: ADR-2014-02087

PATIENT
  Sex: Female

DRUGS (8)
  1. BACLOFEN INTRATHECAL [Suspect]
     Active Substance: BACLOFEN
     Indication: POST LAMINECTOMY SYNDROME
     Dates: start: 20081014
  2. SALINE [Suspect]
     Active Substance: SODIUM CHLORIDE
  3. FENTANYL. [Suspect]
     Active Substance: FENTANYL
  4. BACLOFEN INTRATHECAL [Suspect]
     Active Substance: BACLOFEN
     Dates: start: 20081014
  5. DILAUDID [Suspect]
     Active Substance: HYDROMORPHONE HYDROCHLORIDE
  6. PLAVIX [Suspect]
     Active Substance: CLOPIDOGREL BISULFATE
  7. COUMADIN [Suspect]
     Active Substance: WARFARIN SODIUM
  8. ASPIRIN. [Suspect]
     Active Substance: ASPIRIN

REACTIONS (10)
  - Medical device complication [None]
  - Pain [None]
  - Device malfunction [None]
  - Drug withdrawal syndrome [None]
  - Arachnoiditis [None]
  - Unevaluable event [None]
  - Iatrogenic injury [None]
  - Cardiac disorder [None]
  - Device damage [None]
  - Device battery issue [None]
